FAERS Safety Report 5106836-6 (Version None)
Quarter: 2006Q3

REPORT INFORMATION
  Report Type: 
  Country: None (occurrence: None)
  Receive Date: 20060912
  Receipt Date: 20060828
  Transmission Date: 20061208
  Serious: No
  Sender: FDA-Public Use
  Company Number: 13501341

PATIENT
  Age: 11 Year
  Sex: Female

DRUGS (1)
  1. CEFADROXIL MONOHYDRATE [Suspect]
     Indication: UPPER RESPIRATORY TRACT INFECTION

REACTIONS (2)
  - NEPHRITIS INTERSTITIAL [None]
  - NORMOCHROMIC NORMOCYTIC ANAEMIA [None]
